FAERS Safety Report 5750140-X (Version None)
Quarter: 2008Q2

REPORT INFORMATION
  Report Type: 
  Country: None (occurrence: None)
  Receive Date: 20080527
  Receipt Date: 20080519
  Transmission Date: 20081010
  Serious: Yes (Hospitalization, Other)
  Sender: FDA-Public Use
  Company Number: US-JNJFOC-20080305453

PATIENT
  Sex: Male
  Weight: 121.11 kg

DRUGS (6)
  1. REMICADE [Suspect]
     Indication: CROHN'S DISEASE
     Route: 042
  2. REMICADE [Suspect]
     Indication: INFLAMMATORY BOWEL DISEASE
     Route: 042
  3. PREDNISONE TAB [Concomitant]
  4. TYLENOL [Concomitant]
     Indication: PREMEDICATION
     Route: 048
  5. LORATADINE [Concomitant]
     Indication: PREMEDICATION
     Route: 048
  6. ZOFRAN [Concomitant]
     Indication: PREMEDICATION
     Route: 042

REACTIONS (7)
  - ABDOMINAL PAIN [None]
  - INFUSION RELATED REACTION [None]
  - NAUSEA [None]
  - PNEUMONIA [None]
  - SPLENIC INFARCTION [None]
  - TENOSYNOVITIS [None]
  - VOMITING [None]
